FAERS Safety Report 7233008-1 (Version None)
Quarter: 2011Q1

REPORT INFORMATION
  Report Type: 
  Country: None (occurrence: None)
  Receive Date: 20110119
  Receipt Date: 20110114
  Transmission Date: 20110831
  Serious: Yes (Death, Other)
  Sender: FDA-Public Use
  Company Number: CO-PFIZER INC-2011011025

PATIENT
  Sex: Male

DRUGS (1)
  1. CARDURA [Suspect]
     Indication: PROSTATIC DISORDER
     Dosage: UNK
     Route: 048
     Dates: start: 20040101

REACTIONS (2)
  - CARDIAC PACEMAKER INSERTION [None]
  - CARDIAC DISORDER [None]
